FAERS Safety Report 5981596-5 (Version None)
Quarter: 2008Q4

REPORT INFORMATION
  Report Type: 
  Country: None (occurrence: None)
  Receive Date: 20081202
  Receipt Date: 20081117
  Transmission Date: 20090506
  Serious: Yes (Other)
  Sender: FDA-Public Use
  Company Number: 2008-04279

PATIENT
  Age: 65 Year
  Sex: Male
  Weight: 96 kg

DRUGS (8)
  1. VELCADE [Suspect]
     Indication: MULTIPLE MYELOMA
     Dosage: 1 MG/M2, INTRAVENOUS
     Route: 042
     Dates: end: 20081028
  2. THALIDOMIDE [Suspect]
     Indication: MULTIPLE MYELOMA
  3. NORVASC [Concomitant]
  4. KYTRIL [Concomitant]
  5. DOCUSATE SODIUM (DOCUSATE SODIUM) [Concomitant]
  6. LOPRESSOR [Concomitant]
  7. NEXIUM [Concomitant]
  8. ACYCLOVIR [Concomitant]

REACTIONS (7)
  - CHILLS [None]
  - DISEASE PROGRESSION [None]
  - DYSURIA [None]
  - MICTURITION URGENCY [None]
  - MYELOMA RECURRENCE [None]
  - NAUSEA [None]
  - PYREXIA [None]
